FAERS Safety Report 14512535 (Version 1)
Quarter: 2018Q1

REPORT INFORMATION
  Report Type: Spontaneous
  Country: US (occurrence: US)
  Receive Date: 20180209
  Receipt Date: 20180209
  Transmission Date: 20180509
  Serious: No
  Sender: FDA-Public Use
  Company Number: US-ALLERGAN-1715324US

PATIENT
  Sex: Female
  Weight: 62.59 kg

DRUGS (1)
  1. RESTASIS [Suspect]
     Active Substance: CYCLOSPORINE
     Indication: DRY EYE
     Dosage: 2 GTT, BID
     Route: 047
     Dates: end: 20170410

REACTIONS (3)
  - Eye pain [Recovering/Resolving]
  - Inappropriate schedule of drug administration [Unknown]
  - Lacrimation increased [Recovering/Resolving]
